FAERS Safety Report 7108376-1 (Version None)
Quarter: 2010Q4

REPORT INFORMATION
  Report Type: 
  Country: None (occurrence: None)
  Receive Date: 20101117
  Receipt Date: 20101110
  Transmission Date: 20110411
  Serious: Yes (Hospitalization)
  Sender: FDA-Public Use
  Company Number: A0798491A

PATIENT
  Age: 56 Year
  Sex: Female
  Weight: 95.5 kg

DRUGS (5)
  1. AVANDIA [Suspect]
     Route: 048
     Dates: start: 19980101, end: 20030101
  2. MONOPRIL [Concomitant]
  3. COVERA-HS [Concomitant]
  4. PAXIL [Concomitant]
  5. GLYBURIDE [Concomitant]

REACTIONS (5)
  - CARDIOVASCULAR DISORDER [None]
  - CORONARY ARTERY DISEASE [None]
  - MYOCARDIAL INFARCTION [None]
  - PERIRECTAL ABSCESS [None]
  - WHEEZING [None]
